FAERS Safety Report 12263054 (Version 1)
Quarter: 2016Q2

REPORT INFORMATION
  Report Type: Spontaneous
  Country: FR (occurrence: FR)
  Receive Date: 20160413
  Receipt Date: 20160413
  Transmission Date: 20160815
  Serious: Yes (Hospitalization, Other)
  Sender: FDA-Public Use
  Company Number: FR-AMGEN-FRASP2015120350

PATIENT
  Age: 42 Year
  Sex: Male

DRUGS (2)
  1. ENBREL [Suspect]
     Active Substance: ETANERCEPT
     Dosage: 25 MG, WEEKLY
     Route: 065
     Dates: start: 201511, end: 201601
  2. ENBREL [Suspect]
     Active Substance: ETANERCEPT
     Indication: RHEUMATOID ARTHRITIS
     Dosage: 50 MG, WEEKLY
     Route: 058
     Dates: start: 20150601, end: 201511

REACTIONS (9)
  - Dyspnoea [Unknown]
  - Anaemia macrocytic [Unknown]
  - Thrombocytopenia [Not Recovered/Not Resolved]
  - Refractory cytopenia with multilineage dysplasia [Unknown]
  - Lymphopenia [Unknown]
  - Thrombocytopenia [Not Recovered/Not Resolved]
  - Condition aggravated [Unknown]
  - Vitamin B12 deficiency [Unknown]
  - Weight decreased [Unknown]

NARRATIVE: CASE EVENT DATE: 20150707
